FAERS Safety Report 17597184 (Version 1)
Quarter: 2020Q1

REPORT INFORMATION
  Report Type: Report from Study
  Country: None (occurrence: US)
  Receive Date: 20200330
  Receipt Date: 20200330
  Transmission Date: 20200409
  Serious: Yes (Hospitalization, Other)
  Sender: FDA-Public Use
  Company Number: US-ABBVIE-20P-163-3341215-00

PATIENT
  Sex: Female

DRUGS (1)
  1. IMBRUVICA [Suspect]
     Active Substance: IBRUTINIB
     Indication: LYMPHOCYTIC LEUKAEMIA
     Route: 048
     Dates: start: 20180521

REACTIONS (9)
  - Pleural effusion [Unknown]
  - Skin infection [Unknown]
  - Pneumonia [Unknown]
  - Necrosis [Unknown]
  - Chronic obstructive pulmonary disease [Unknown]
  - Skin lesion [Unknown]
  - Arthralgia [Unknown]
  - Pyrexia [Unknown]
  - Nausea [Unknown]
